FAERS Safety Report 12220523 (Version 1)
Quarter: 2016Q1

REPORT INFORMATION
  Report Type: Spontaneous
  Country: US (occurrence: US)
  Receive Date: 20160330
  Receipt Date: 20160330
  Transmission Date: 20160526
  Serious: No
  Sender: FDA-Public Use
  Company Number: US-MYLANLABS-2015M1025864

PATIENT
  Sex: Male
  Weight: 67.57 kg

DRUGS (2)
  1. EMSAM [Suspect]
     Active Substance: SELEGILINE
     Indication: DEPRESSION
     Dosage: 9 MG/QD ;  CHANGE Q24 HOURS
     Route: 062
     Dates: start: 20150210, end: 20150802
  2. EMSAM [Suspect]
     Active Substance: SELEGILINE
     Indication: ANXIETY

REACTIONS (2)
  - Dizziness [Not Recovered/Not Resolved]
  - Insomnia [Recovered/Resolved]

NARRATIVE: CASE EVENT DATE: 2015
